FAERS Safety Report 9396801 (Version 3)
Quarter: 2015Q2

REPORT INFORMATION
  Report Type: Report from Study
  Country: CL (occurrence: CL)
  Receive Date: 20130712
  Receipt Date: 20150625
  Transmission Date: 20150821
  Serious: Yes (Hospitalization, Other)
  Sender: FDA-Public Use
  Company Number: CL-BRISTOL-MYERS SQUIBB COMPANY-19026830

PATIENT
  Age: 67 Year
  Sex: Male

DRUGS (10)
  1. PLACEBO [Suspect]
     Active Substance: UNSPECIFIED INGREDIENT
     Indication: NON-SMALL CELL LUNG CANCER
     Dosage: 1DF:750-UNITS NOS
     Route: 042
     Dates: start: 20130318, end: 20130523
  2. BLINDED IPILIMUMAB [Suspect]
     Active Substance: IPILIMUMAB
     Indication: NON-SMALL CELL LUNG CANCER
     Dosage: 1 DF: 331 UNIT NOS
     Route: 042
     Dates: start: 20130318, end: 20130523
  3. CHLORMADINONE [Concomitant]
     Active Substance: CHLORMADINONE
     Indication: PRODUCT USED FOR UNKNOWN INDICATION
     Dosage: UNK
     Route: 065
     Dates: start: 201203
  4. BLINDED IPILIMUMAB [Suspect]
     Active Substance: IPILIMUMAB
     Indication: NON-SMALL CELL LUNG CANCER
     Dosage: 1DF-148UNIT NOS,INT, LAST DOSE 23MAY13
     Route: 042
     Dates: start: 20130502, end: 20130523
  5. PLACEBO [Suspect]
     Active Substance: UNSPECIFIED INGREDIENT
     Indication: NON-SMALL CELL LUNG CANCER
     Dosage: 1DF-148UNIT NOS,INT, LAST DOSE 23MAY13
     Route: 042
     Dates: start: 20130502, end: 20130523
  6. PLACEBO [Suspect]
     Active Substance: UNSPECIFIED INGREDIENT
     Indication: NON-SMALL CELL LUNG CANCER
     Dosage: 1 DF: 331 UNIT NOS
     Route: 042
     Dates: start: 20130318, end: 20130523
  7. BLINDED IPILIMUMAB [Suspect]
     Active Substance: IPILIMUMAB
     Indication: NON-SMALL CELL LUNG CANCER
     Dosage: 1DF:750-UNITS NOS
     Route: 042
     Dates: start: 20130318, end: 20130523
  8. BLINDED PACLITAXEL [Suspect]
     Active Substance: PACLITAXEL
     Indication: NON-SMALL CELL LUNG CANCER
     Dosage: 1 DF: 331 UNIT NOS
     Route: 042
     Dates: start: 20130318, end: 20130523
  9. BLINDED CARBOPLATIN [Suspect]
     Active Substance: CARBOPLATIN
     Indication: NON-SMALL CELL LUNG CANCER
     Dosage: 1DF:750-UNITS NOS
     Route: 042
     Dates: start: 20130318, end: 20130523
  10. PROSTALL [Concomitant]
     Indication: PRODUCT USED FOR UNKNOWN INDICATION
     Dosage: UNK
     Route: 065
     Dates: start: 201203

REACTIONS (2)
  - Diarrhoea [Recovered/Resolved]
  - Diverticulitis [Recovered/Resolved]

NARRATIVE: CASE EVENT DATE: 20130617
